FAERS Safety Report 23555146 (Version 1)
Quarter: 2024Q1

REPORT INFORMATION
  Report Type: Spontaneous
  Country: AT (occurrence: AT)
  Receive Date: 20240222
  Receipt Date: 20240222
  Transmission Date: 20240409
  Serious: Yes (Hospitalization, Other)
  Sender: FDA-Public Use
  Company Number: AT-BAXTER-2023BAX037513

PATIENT
  Age: 76 Year
  Sex: Female
  Weight: 84 kg

DRUGS (24)
  1. CYCLOPHOSPHAMIDE [Suspect]
     Active Substance: CYCLOPHOSPHAMIDE
     Indication: Diffuse large B-cell lymphoma
     Dosage: 1448.88 MG, EVERY 3 WEEKS
     Route: 042
     Dates: start: 20231113, end: 20231113
  2. DOXORUBICIN [Suspect]
     Active Substance: DOXORUBICIN
     Indication: Diffuse large B-cell lymphoma
     Dosage: 96.59 MG, EVERY 3 WEEKS
     Route: 042
     Dates: start: 20231113, end: 20231113
  3. EPCORITAMAB [Suspect]
     Active Substance: EPCORITAMAB
     Indication: Diffuse large B-cell lymphoma
     Dosage: 0.16 MG, TOTAL
     Route: 058
     Dates: start: 20231114, end: 20231114
  4. PREDNISONE [Suspect]
     Active Substance: PREDNISONE
     Indication: Diffuse large B-cell lymphoma
     Dosage: 100 MG C1-6, DAY 1-5, EVERY 1 DAYS
     Route: 048
     Dates: start: 20231113, end: 20231117
  5. RITUXIMAB [Suspect]
     Active Substance: RITUXIMAB
     Indication: Diffuse large B-cell lymphoma
     Dosage: 724.44 MG, EVERY 3 WEEKS
     Route: 042
     Dates: start: 20231113, end: 20231113
  6. VINCRISTINE [Suspect]
     Active Substance: VINCRISTINE
     Indication: Diffuse large B-cell lymphoma
     Dosage: 2 MG, EVERY 3 WEEKS
     Route: 042
     Dates: start: 20231113, end: 20231113
  7. ATORVASTATIN [Concomitant]
     Active Substance: ATORVASTATIN
     Indication: Product used for unknown indication
     Dosage: 80 MG, EVERY 1 DAYS
     Route: 065
     Dates: start: 20231108
  8. BISOPROLOL [Concomitant]
     Active Substance: BISOPROLOL\BISOPROLOL FUMARATE
     Indication: Atrial fibrillation
     Dosage: 5 MG, EVERY 1 DAYS
     Route: 065
     Dates: start: 1998
  9. CHLORHEXAMED FORTE [Concomitant]
     Indication: Prophylaxis
     Dosage: 500 ML, EVERY 6 HOURS
     Route: 065
     Dates: start: 20231112
  10. CHLORHEXAMED FORTE [Concomitant]
     Indication: Stomatitis
  11. Daflon [Concomitant]
     Indication: Peripheral venous disease
     Dosage: 500 MG, EVERY 1 DAYS
     Route: 065
     Dates: start: 2003
  12. Daflon [Concomitant]
     Indication: Vascular disorder prophylaxis
  13. EMEND [Concomitant]
     Active Substance: APREPITANT
     Indication: Prophylaxis of nausea and vomiting
     Dosage: 125/80 MG, OCCASIONAL
     Route: 065
     Dates: start: 20231113
  14. FUROSEMIDE [Concomitant]
     Active Substance: FUROSEMIDE
     Indication: Product used for unknown indication
     Dosage: 30 MG, EVERY 1 DAYS
     Route: 065
     Dates: start: 20231108
  15. Gerovit [Concomitant]
     Indication: Vitamin supplementation
     Dosage: 40 DROPS, EVERY 1 WEEKS
     Route: 065
  16. Lidaprim [Concomitant]
     Indication: Infection prophylaxis
     Dosage: 800 MG SULFAMTROL/160 MG TRIMETHOPRIM, 3/WEEKS
     Route: 065
     Dates: start: 20231115
  17. NI LI AN [Concomitant]
     Indication: Hypertension
     Dosage: 8 MG, EVERY 1 DAYS
     Route: 065
     Dates: start: 2003
  18. PANTOPRAZOLE SODIUM [Concomitant]
     Active Substance: PANTOPRAZOLE SODIUM
     Indication: Gastrointestinal disorder prophylaxis
     Dosage: 40 MG, EVERY 1 DAY
     Route: 065
     Dates: start: 20231114
  19. Siccaforte [Concomitant]
     Indication: Eye disorder prophylaxis
     Dosage: 10 G OCCASIONAL
     Route: 065
     Dates: start: 2020
  20. LEVOTHYROXINE SODIUM [Concomitant]
     Active Substance: LEVOTHYROXINE SODIUM
     Indication: Thyroidectomy
     Dosage: 50 UG, EVERY 1 DAYS
     Route: 065
     Dates: start: 1994
  21. URSODIOL [Concomitant]
     Active Substance: URSODIOL
     Indication: Primary biliary cholangitis
     Dosage: 500 MG, TWICE (START DATE: MAY-2021)
     Route: 065
     Dates: start: 202105
  22. VIROPEL [Concomitant]
     Indication: Antiviral prophylaxis
     Dosage: 500 MG, EVERY 1 DAYS
     Route: 065
     Dates: start: 20231115
  23. XARELTO [Concomitant]
     Active Substance: RIVAROXABAN
     Indication: Atrial fibrillation
     Dosage: 20 MG, EVERY 1 DAYS
     Route: 065
     Dates: start: 202005
  24. ALLOPURINOL [Concomitant]
     Active Substance: ALLOPURINOL
     Indication: Prophylaxis
     Dosage: 300 MG, EVERY 1 DAYS
     Route: 065
     Dates: start: 20231116

REACTIONS (1)
  - Febrile neutropenia [Recovered/Resolved]

NARRATIVE: CASE EVENT DATE: 20231123
